FAERS Safety Report 22016131 (Version 4)
Quarter: 2023Q1

REPORT INFORMATION
  Report Type: Report from Study
  Country: US (occurrence: US)
  Receive Date: 20230221
  Receipt Date: 20230313
  Transmission Date: 20230417
  Serious: Yes (Hospitalization, Other)
  Sender: FDA-Public Use
  Company Number: US-HORIZON THERAPEUTICS-HZN-2023-000202

PATIENT

DRUGS (2)
  1. TEPEZZA [Suspect]
     Active Substance: TEPROTUMUMAB-TRBW
     Indication: Endocrine ophthalmopathy
     Dosage: FIRST INFUSION
     Route: 042
     Dates: start: 20221219
  2. TEPEZZA [Suspect]
     Active Substance: TEPROTUMUMAB-TRBW
     Dosage: SECOND INFUSION
     Route: 042

REACTIONS (13)
  - Multiple sclerosis relapse [Unknown]
  - Blood pressure increased [Unknown]
  - Blood glucose increased [Unknown]
  - Malaise [Unknown]
  - Asthenia [Not Recovered/Not Resolved]
  - Fatigue [Recovering/Resolving]
  - Vision blurred [Not Recovered/Not Resolved]
  - Impaired driving ability [Unknown]
  - COVID-19 [Unknown]
  - Infusion site extravasation [Unknown]
  - Product administration error [Unknown]
  - Off label use [Unknown]
  - Eye swelling [Unknown]

NARRATIVE: CASE EVENT DATE: 20230201
